FAERS Safety Report 5218805-6 (Version None)
Quarter: 2007Q1

REPORT INFORMATION
  Report Type: 
  Country: None (occurrence: None)
  Receive Date: 20070125
  Receipt Date: 20070116
  Transmission Date: 20070707
  Serious: Yes (Hospitalization)
  Sender: FDA-Public Use
  Company Number: JP-SP-2006-02738

PATIENT
  Age: 63 Year
  Sex: Male

DRUGS (3)
  1. IMMUCYST [Suspect]
     Indication: BLADDER CANCER
     Route: 043
     Dates: start: 20060822, end: 20060912
  2. IMMUCYST [Suspect]
     Route: 043
     Dates: start: 20060822, end: 20060912
  3. LEVOFLOXACIN [Concomitant]
     Dosage: 2T X 1
     Route: 048
     Dates: start: 20060822, end: 20061003

REACTIONS (3)
  - CONTRACTED BLADDER [None]
  - POLLAKIURIA [None]
  - PYREXIA [None]
